FAERS Safety Report 8463264-3 (Version None)
Quarter: 2012Q2

REPORT INFORMATION
  Report Type: 
  Country: None (occurrence: None)
  Receive Date: 20120625
  Receipt Date: 20120613
  Transmission Date: 20120825
  Serious: Yes (Other)
  Sender: FDA-Public Use
  Company Number: US-BRISTOL-MYERS SQUIBB COMPANY-16686321

PATIENT
  Age: 70 Year
  Sex: Male
  Weight: 96 kg

DRUGS (12)
  1. FLOMAX [Concomitant]
     Route: 048
     Dates: start: 20050101
  2. CARDIZEM LA [Suspect]
     Indication: HYPERTENSION
     Route: 048
     Dates: start: 20050101, end: 20120511
  3. OMEPRAZOLE [Concomitant]
     Indication: GASTROOESOPHAGEAL REFLUX DISEASE
     Route: 048
     Dates: start: 20050101
  4. WARFARIN SODIUM [Suspect]
     Indication: CARDIOVASCULAR EVENT PROPHYLAXIS
     Route: 042
     Dates: start: 20050101, end: 20120511
  5. AVODART [Concomitant]
     Route: 048
     Dates: start: 20050101
  6. HUMULIN R [Concomitant]
     Indication: TYPE 2 DIABETES MELLITUS
     Route: 058
  7. COZAAR [Concomitant]
     Indication: HYPERTENSION
     Route: 048
  8. FOSAMAX [Concomitant]
     Indication: OSTEOPOROSIS
     Route: 048
     Dates: start: 20050101
  9. VITAMIN D [Concomitant]
     Indication: SUPPLEMENTATION THERAPY
     Route: 048
     Dates: start: 20100101
  10. VITAMIN E [Concomitant]
     Indication: SUPPLEMENTATION THERAPY
     Route: 048
     Dates: start: 20100101
  11. GLYBURIDE [Concomitant]
     Indication: TYPE 2 DIABETES MELLITUS
     Route: 048
  12. FISH OIL [Concomitant]
     Indication: SUPPLEMENTATION THERAPY
     Route: 048
     Dates: start: 20100101

REACTIONS (3)
  - CHEST PAIN [None]
  - ANAEMIA [None]
  - PRESYNCOPE [None]
